FAERS Safety Report 6291579-6 (Version None)
Quarter: 2009Q3

REPORT INFORMATION
  Report Type: 
  Country: None (occurrence: None)
  Receive Date: 20090730
  Receipt Date: 20090727
  Transmission Date: 20100115
  Serious: Yes (Death, Hospitalization)
  Sender: FDA-Public Use
  Company Number: PHHY2009AU24041

PATIENT
  Sex: Male

DRUGS (3)
  1. CLOZARIL [Suspect]
     Indication: SCHIZOPHRENIA
     Dosage: 900 UNK, UNK
     Route: 048
     Dates: start: 19950307
  2. VALPROATE SODIUM [Concomitant]
  3. ANTACID TAB [Concomitant]
     Dosage: UNK

REACTIONS (2)
  - INTESTINAL ISCHAEMIA [None]
  - SCHIZOPHRENIA [None]
